FAERS Safety Report 8330091-7 (Version None)
Quarter: 2012Q2

REPORT INFORMATION
  Report Type: 
  Country: None (occurrence: None)
  Receive Date: 20120420
  Receipt Date: 20120209
  Transmission Date: 20120825
  Serious: Yes (Death)
  Sender: FDA-Public Use
  Company Number: 2012030819

PATIENT
  Age: 57 Year
  Sex: Male

DRUGS (3)
  1. STEROID (CORTICOSTEROIDS) [Concomitant]
  2. IMMUNE GLOBULIN INTRAVENOUS (HUMAN) [Suspect]
     Indication: HISTIOCYTOSIS HAEMATOPHAGIC
     Dosage: 5 G QD
  3. G-CSF (GRANULOCYTE COLONY STIMULATING FACTOR) [Suspect]

REACTIONS (6)
  - ASCITES [None]
  - HISTIOCYTOSIS HAEMATOPHAGIC [None]
  - MULTI-ORGAN FAILURE [None]
  - PROTHROMBIN TIME PROLONGED [None]
  - STAPHYLOCOCCAL SEPSIS [None]
  - BLOOD BILIRUBIN INCREASED [None]
